FAERS Safety Report 9839117 (Version 4)
Quarter: 2014Q1

REPORT INFORMATION
  Report Type: Report from Study
  Country: US (occurrence: US)
  Receive Date: 20140123
  Receipt Date: 20140207
  Transmission Date: 20141002
  Serious: Yes (Death, Hospitalization)
  Sender: FDA-Public Use
  Company Number: US-BRISTOL-MYERS SQUIBB COMPANY-19413020

PATIENT
  Age: 65 Year
  Sex: Male

DRUGS (7)
  1. BMS936564 [Suspect]
     Indication: ACUTE MYELOID LEUKAEMIA
     Route: 042
     Dates: start: 20130521, end: 20130712
  2. ETOPOSIDE [Suspect]
     Indication: ACUTE MYELOID LEUKAEMIA
     Dates: start: 20130528
  3. CYTARABINE [Suspect]
     Indication: ACUTE MYELOID LEUKAEMIA
     Dates: start: 20130528
  4. MITOXANTRONE HCL [Suspect]
     Indication: ACUTE MYELOID LEUKAEMIA
     Dates: start: 20130528
  5. ALLOPURINOL [Concomitant]
     Dates: start: 20130521
  6. PRILOSEC [Concomitant]
     Dates: start: 20130529
  7. TUMS [Concomitant]
     Dates: start: 2010

REACTIONS (3)
  - Cardiac arrest [Fatal]
  - Pneumonia [Not Recovered/Not Resolved]
  - Pyrexia [Not Recovered/Not Resolved]
